FAERS Safety Report 16673473 (Version 8)
Quarter: 2021Q1

REPORT INFORMATION
  Report Type: Spontaneous
  Country: US (occurrence: US)
  Receive Date: 20190806
  Receipt Date: 20210315
  Transmission Date: 20210419
  Serious: Yes (Hospitalization)
  Sender: FDA-Public Use
  Company Number: US-PFIZER INC-2019335831

PATIENT
  Age: 70 Year
  Sex: Female
  Weight: 88.89 kg

DRUGS (15)
  1. LYRICA [Suspect]
     Active Substance: PREGABALIN
     Indication: ARTHRITIS
  2. LYRICA [Suspect]
     Active Substance: PREGABALIN
     Indication: NEUROPATHY PERIPHERAL
  3. BABY ASPIRIN [Concomitant]
     Active Substance: ASPIRIN
     Dosage: 80 MG, 1X/DAY
  4. MECLIZINE [Concomitant]
     Active Substance: MECLIZINE HYDROCHLORIDE
     Indication: VERTIGO
     Dosage: 37.5 MG, DAILY (25 MG, HALF OF IT IN THE MORNING AND A WHOLE AT NIGHT)
  5. LYRICA [Suspect]
     Active Substance: PREGABALIN
     Indication: FIBROMYALGIA
     Dosage: 75 MG, 3X/DAY
     Route: 048
  6. LEVOTHYROXINE. [Concomitant]
     Active Substance: LEVOTHYROXINE
     Indication: THYROID DISORDER
     Dosage: 0.025 MG, 1X/DAY
     Route: 048
  7. STOOL SOFTENER (DOCUSATE) [Concomitant]
     Active Substance: DOCUSATE
     Dosage: UNK, 1X/DAY
  8. LYRICA [Suspect]
     Active Substance: PREGABALIN
     Indication: CARPAL TUNNEL SYNDROME
  9. LEVOTHYROXINE. [Concomitant]
     Active Substance: LEVOTHYROXINE
     Dosage: 0.25 MG, 1X/DAY
  10. ALPRAZOLAM. [Concomitant]
     Active Substance: ALPRAZOLAM
     Indication: ANXIETY
     Dosage: 1 MG, AS NEEDED ( EVERY 8 HOURS)
     Route: 048
  11. DULOXETINE DR [Concomitant]
     Active Substance: DULOXETINE
     Indication: ARTHRITIS
     Dosage: 30 MG, 2X/DAY
     Route: 048
  12. ALPRAZOLAM. [Concomitant]
     Active Substance: ALPRAZOLAM
     Dosage: 1 MG, 2X/DAY (1 MORNING, 1 NIGHT)
     Dates: start: 198508
  13. LYRICA [Suspect]
     Active Substance: PREGABALIN
     Indication: BACK PAIN
  14. ATORVASTATIN [Concomitant]
     Active Substance: ATORVASTATIN
     Dosage: 20 MG
  15. PROPRANOLOL [Concomitant]
     Active Substance: PROPRANOLOL HYDROCHLORIDE
     Indication: CARDIAC DISORDER
     Dosage: 60 MG, 1X/DAY
     Route: 048

REACTIONS (11)
  - Laryngitis [Unknown]
  - Illness [Unknown]
  - Abnormal behaviour [Unknown]
  - Fall [Unknown]
  - Pain [Unknown]
  - Hypertension [Recovered/Resolved]
  - Jaw disorder [Unknown]
  - Tooth disorder [Unknown]
  - Peripheral swelling [Unknown]
  - Migraine [Not Recovered/Not Resolved]
  - Ear infection [Unknown]
